FAERS Safety Report 18922663 (Version 1)
Quarter: 2021Q1

REPORT INFORMATION
  Report Type: Spontaneous
  Country: JP (occurrence: JP)
  Receive Date: 20210222
  Receipt Date: 20210222
  Transmission Date: 20210420
  Serious: Yes (Other)
  Sender: FDA-Public Use
  Company Number: JP-MYLANLABS-2021M1010461

PATIENT
  Age: 46 Year
  Sex: Female

DRUGS (1)
  1. TAZOPIPE FOR COMBINATION INJECTION BAG 4.5 [PFIZER] [Suspect]
     Active Substance: PIPERACILLIN SODIUM\TAZOBACTAM SODIUM
     Indication: PERITONITIS
     Route: 041

REACTIONS (4)
  - Urine output decreased [Unknown]
  - Renal impairment [Unknown]
  - Oedema [Unknown]
  - Hypersensitivity [Unknown]
